FAERS Safety Report 10928455 (Version 1)
Quarter: 2015Q1

REPORT INFORMATION
  Report Type: Spontaneous
  Country: US (occurrence: None)
  Receive Date: 20150318
  Receipt Date: 20150318
  Transmission Date: 20150721
  Serious: Yes (Hospitalization)
  Sender: FDA-Public Use
  Company Number: None

PATIENT
  Age: 54 Year
  Sex: Female
  Weight: 56.7 kg

DRUGS (3)
  1. VITAMIN C [Concomitant]
     Active Substance: ASCORBIC ACID
  2. DEXAMETHASONE. [Suspect]
     Active Substance: DEXAMETHASONE
     Indication: MULTIPLE SCLEROSIS
     Dosage: 3-2-1 3X WEEK 2X WEEK 1X WEEK MOUTH
     Route: 048
     Dates: start: 20141211, end: 20141222
  3. CLONAZEPAM. [Concomitant]
     Active Substance: CLONAZEPAM

REACTIONS (10)
  - Parosmia [None]
  - Memory impairment [None]
  - Dysgraphia [None]
  - Arthralgia [None]
  - Anxiety [None]
  - Dysphemia [None]
  - Headache [None]
  - Photopsia [None]
  - Confusional state [None]
  - Myalgia [None]

NARRATIVE: CASE EVENT DATE: 20141215
